FAERS Safety Report 14056136 (Version 14)
Quarter: 2021Q3

REPORT INFORMATION
  Report Type: Spontaneous
  Country: JP (occurrence: JP)
  Receive Date: 20171006
  Receipt Date: 20210821
  Transmission Date: 20211014
  Serious: Yes (Hospitalization, Disabling, Other)
  Sender: FDA-Public Use
  Company Number: JP-UNITED THERAPEUTICS-UNT-2017-014245

PATIENT
  Age: 45 Year
  Sex: Male
  Weight: 77 kg

DRUGS (34)
  1. OPSUMIT [Concomitant]
     Active Substance: MACITENTAN
     Indication: PULMONARY ARTERIAL HYPERTENSION
     Dosage: 10 MG, QD
     Route: 048
     Dates: start: 20160902, end: 2021
  2. CIBENOL [Concomitant]
     Active Substance: CIFENLINE
     Indication: PULMONARY ARTERIAL HYPERTENSION
     Dosage: UNK
     Route: 048
     Dates: start: 20171027, end: 20200518
  3. REMODULIN [Suspect]
     Active Substance: TREPROSTINIL
     Indication: PULMONARY ARTERIAL HYPERTENSION
     Dosage: UNK, CONTINUING
     Route: 058
     Dates: start: 20160217, end: 201602
  4. REMODULIN [Suspect]
     Active Substance: TREPROSTINIL
     Dosage: 0.0107 ?G/KG, CONTINUING
     Route: 058
     Dates: start: 201602, end: 201602
  5. WARFARIN [WARFARIN POTASSIUM] [Suspect]
     Active Substance: WARFARIN POTASSIUM
     Indication: PULMONARY ARTERIAL HYPERTENSION
     Dosage: 4 MG, QD
     Route: 048
     Dates: start: 20170908
  6. TRAMCET [Suspect]
     Active Substance: ACETAMINOPHEN\TRAMADOL
     Indication: PROPHYLAXIS
     Dosage: 2 TABLETS/DAY
     Route: 048
     Dates: start: 2016
  7. TRACLEER [Concomitant]
     Active Substance: BOSENTAN
     Indication: PULMONARY ARTERIAL HYPERTENSION
     Dosage: UNK
     Route: 048
     Dates: start: 200608, end: 20160901
  8. FUROSEMIDE. [Concomitant]
     Active Substance: FUROSEMIDE
     Dosage: 60 MG
     Route: 048
  9. FUROSEMIDE. [Concomitant]
     Active Substance: FUROSEMIDE
     Dosage: 100 MG
     Route: 048
  10. LOXOPROFEN SODIUM HYDRATE [Concomitant]
     Active Substance: LOXOPROFEN SODIUM DIHYDRATE
     Indication: PRODUCT USED FOR UNKNOWN INDICATION
     Dosage: 60 MG, QD
     Route: 048
  11. SAMSCA [Concomitant]
     Active Substance: TOLVAPTAN
     Indication: PULMONARY ARTERIAL HYPERTENSION
     Dosage: 60 MG, QD
     Route: 048
  12. REMODULIN [Suspect]
     Active Substance: TREPROSTINIL
     Dosage: 0.210 ?G/KG, CONTINUING
     Route: 058
     Dates: end: 201707
  13. REMODULIN [Suspect]
     Active Substance: TREPROSTINIL
     Dosage: 85 MCL/H, CONTINUING
     Route: 058
     Dates: start: 201711
  14. REMODULIN [Suspect]
     Active Substance: TREPROSTINIL
     Indication: PULMONARY ARTERIAL HYPERTENSION
     Dosage: UNK, CONTINUING
     Route: 041
     Dates: start: 201709
  15. FUROSEMIDE. [Concomitant]
     Active Substance: FUROSEMIDE
     Dosage: 20 MG, QD
     Route: 048
     Dates: end: 2021
  16. TRAMCET [Suspect]
     Active Substance: ACETAMINOPHEN\TRAMADOL
     Dosage: 2 TABLETS/DAY, (ONCE/DAY, PRN)
     Route: 048
     Dates: start: 2016
  17. TRAMCET [Suspect]
     Active Substance: ACETAMINOPHEN\TRAMADOL
     Dosage: 4 TABLETS/DAY
     Route: 048
     Dates: start: 2016
  18. TRAMCET [Suspect]
     Active Substance: ACETAMINOPHEN\TRAMADOL
     Dosage: 6 TABLETS/DAY
     Route: 048
     Dates: start: 2016
  19. REMODULIN [Suspect]
     Active Substance: TREPROSTINIL
     Dosage: 0.105 ?G/KG, CONTINUING
     Route: 058
     Dates: start: 201602
  20. REMODULIN [Suspect]
     Active Substance: TREPROSTINIL
     Dosage: 0.218 ?G/KG, CONTINUING
     Route: 041
     Dates: start: 201709, end: 201711
  21. SAMSCA [Concomitant]
     Active Substance: TOLVAPTAN
     Dosage: 7.5 MG, QD
     Route: 048
     Dates: end: 2021
  22. UPTRAVI [Concomitant]
     Active Substance: SELEXIPAG
     Indication: PULMONARY ARTERIAL HYPERTENSION
     Dosage: UNK
     Route: 048
     Dates: start: 20180726, end: 2021
  23. REMODULIN [Suspect]
     Active Substance: TREPROSTINIL
     Dosage: 0.224 ?G/KG, CONTINUING
     Route: 058
  24. TRAMCET [Suspect]
     Active Substance: ACETAMINOPHEN\TRAMADOL
     Indication: PAIN
     Dosage: UNK, ONE TIME DOSE AT NIGHT
     Route: 048
     Dates: start: 20160223, end: 20160223
  25. ENALAPRIL [ENALAPRIL MALEATE] [Concomitant]
     Active Substance: ENALAPRIL MALEATE
     Indication: PULMONARY ARTERIAL HYPERTENSION
     Dosage: 5 MG, QD
     Route: 048
     Dates: end: 2021
  26. FUROSEMIDE. [Concomitant]
     Active Substance: FUROSEMIDE
     Indication: PULMONARY ARTERIAL HYPERTENSION
     Dosage: 40 MG, QD
     Route: 048
  27. REMODULIN [Suspect]
     Active Substance: TREPROSTINIL
     Dosage: 0.202 ?G/KG, CONTINUING
     Route: 058
     Dates: start: 201709, end: 201709
  28. ADCIRCA [Suspect]
     Active Substance: TADALAFIL
     Indication: PULMONARY ARTERIAL HYPERTENSION
     Dosage: 20 MG, Q12H
     Route: 048
     Dates: start: 201011, end: 2021
  29. TRAMCET [Suspect]
     Active Substance: ACETAMINOPHEN\TRAMADOL
     Dosage: 2 TABLETS/DAY
     Route: 048
     Dates: start: 2016
  30. NORVASC [Concomitant]
     Active Substance: AMLODIPINE BESYLATE
     Indication: PULMONARY ARTERIAL HYPERTENSION
     Dosage: 2.5 MG, QD
     Route: 048
     Dates: end: 20161110
  31. POVIDONE?IODINE. [Concomitant]
     Active Substance: POVIDONE-IODINE
     Dosage: UNK
     Route: 049
     Dates: start: 20190702
  32. AMLODIPINE [Concomitant]
     Active Substance: AMLODIPINE BESYLATE
     Indication: PULMONARY ARTERIAL HYPERTENSION
     Dosage: UNK
     Route: 048
     Dates: start: 20161111, end: 20170911
  33. REMODULIN [Suspect]
     Active Substance: TREPROSTINIL
     Dosage: ABOUT 0.220 ?G/KG, CONTINUING
     Route: 058
  34. POVIDONE?IODINE. [Concomitant]
     Active Substance: POVIDONE-IODINE
     Indication: PROPHYLAXIS
     Dosage: UNK, Q6H
     Route: 049
     Dates: end: 20190305

REACTIONS (8)
  - Arthralgia [Not Recovered/Not Resolved]
  - Staphylococcal infection [Not Recovered/Not Resolved]
  - Rash [Recovering/Resolving]
  - Vascular device infection [Not Recovered/Not Resolved]
  - Spinal epidural haematoma [Recovered/Resolved with Sequelae]
  - Cardiac failure [Recovering/Resolving]
  - Quadriplegia [Recovering/Resolving]
  - Dysuria [Not Recovered/Not Resolved]

NARRATIVE: CASE EVENT DATE: 201709
